FAERS Safety Report 11878213 (Version 1)
Quarter: 2015Q4

REPORT INFORMATION
  Report Type: Spontaneous
  Country: CN (occurrence: CN)
  Receive Date: 20151230
  Receipt Date: 20151230
  Transmission Date: 20160305
  Serious: Yes (Death, Other)
  Sender: FDA-Public Use
  Company Number: PHHY2015CN169585

PATIENT
  Sex: Male

DRUGS (14)
  1. VINCRISTINE [Suspect]
     Active Substance: VINCRISTINE
     Indication: STEM CELL TRANSPLANT
     Dosage: 0.022 MG/KG, QD
     Route: 065
  2. CYCLOPHOSPHAMIDE. [Suspect]
     Active Substance: CYCLOPHOSPHAMIDE
     Indication: STEM CELL TRANSPLANT
     Dosage: 70 MG/KG, QD
     Route: 065
  3. CYCLOPHOSPHAMIDE. [Suspect]
     Active Substance: CYCLOPHOSPHAMIDE
     Indication: IMMUNOSUPPRESSION
     Dosage: 250 MG/M2, QD
     Route: 065
  4. ADRIAMYCIN [Suspect]
     Active Substance: DOXORUBICIN HYDROCHLORIDE
     Indication: IMMUNOSUPPRESSION
  5. ADRIAMYCIN [Suspect]
     Active Substance: DOXORUBICIN HYDROCHLORIDE
     Indication: STEM CELL TRANSPLANT
     Dosage: 25 MG/M2, QD
     Route: 065
  6. CISPLATIN. [Suspect]
     Active Substance: CISPLATIN
     Indication: IMMUNOSUPPRESSION
  7. ETOPOSIDE. [Suspect]
     Active Substance: ETOPOSIDE
     Indication: STEM CELL TRANSPLANT
     Dosage: 200 MG/M2, QD
     Route: 065
  8. TOPOTECAN [Suspect]
     Active Substance: TOPOTECAN\TOPOTECAN HYDROCHLORIDE
     Indication: IMMUNOSUPPRESSION
  9. 13-CIS-RETINOIC ACID [Suspect]
     Active Substance: ISOTRETINOIN
     Indication: IMMUNOSUPPRESSION
  10. ETOPOSIDE. [Suspect]
     Active Substance: ETOPOSIDE
     Indication: IMMUNOSUPPRESSION
  11. 13-CIS-RETINOIC ACID [Suspect]
     Active Substance: ISOTRETINOIN
     Indication: STEM CELL TRANSPLANT
     Route: 065
  12. VINCRISTINE [Suspect]
     Active Substance: VINCRISTINE
     Indication: IMMUNOSUPPRESSION
  13. TOPOTECAN [Suspect]
     Active Substance: TOPOTECAN\TOPOTECAN HYDROCHLORIDE
     Indication: STEM CELL TRANSPLANT
     Dosage: 0.75 MG/M2, QD
     Route: 065
  14. CISPLATIN. [Suspect]
     Active Substance: CISPLATIN
     Indication: STEM CELL TRANSPLANT
     Dosage: 50 MG/M2, QD
     Route: 065

REACTIONS (8)
  - Neuroblastoma [Fatal]
  - Metastases to bone [Fatal]
  - Clostridium difficile colitis [Unknown]
  - Cytomegalovirus viraemia [Unknown]
  - Metastases to the mediastinum [Fatal]
  - Malignant neoplasm progression [Fatal]
  - Lymphadenopathy [Fatal]
  - Neuroblastoma recurrent [Unknown]
